FAERS Safety Report 5719652-9 (Version None)
Quarter: 2008Q2

REPORT INFORMATION
  Report Type: 
  Country: None (occurrence: None)
  Receive Date: 20080428
  Receipt Date: 20080423
  Transmission Date: 20081010
  Serious: Yes (Hospitalization)
  Sender: FDA-Public Use
  Company Number: FR-BRISTOL-MYERS SQUIBB COMPANY-14061816

PATIENT
  Age: 73 Year
  Sex: Male

DRUGS (7)
  1. SPRYCEL [Suspect]
     Indication: ACUTE LYMPHOCYTIC LEUKAEMIA
     Dosage: 03JAN08-10JAN08 140MG,11JAN08-16JAN08 280MG;18JAN-27JAN08,140MG.
     Route: 048
     Dates: start: 20080118, end: 20080127
  2. VINCRISTINE [Suspect]
     Indication: ACUTE LYMPHOCYTIC LEUKAEMIA
     Dosage: GIVEN ON DAY1, DAY8 AND DAY15.03-11-18JAN08.
     Dates: start: 20080119
  3. METHOTREXATE [Suspect]
     Dosage: GIVEN  ON DAY1
     Dates: start: 20080103, end: 20080103
  4. DEXAMETHASONE [Suspect]
     Indication: ACUTE LYMPHOCYTIC LEUKAEMIA
     Dosage: GIVEN ON JAN-3,4,11,12,18,19.03-04JAN08,40MG;11-12JAN08,40MG;18-19JAN08,1DF.
     Dates: start: 20080119
  5. CYTARABINE [Suspect]
     Indication: ACUTE LYMPHOCYTIC LEUKAEMIA
     Dosage: ALSO ON 19-19JAN08,40MG/D.
     Dates: start: 20080119
  6. METHYLPREDNISOLONE [Suspect]
     Indication: ACUTE LYMPHOCYTIC LEUKAEMIA
     Dosage: ALSO ON 19-19JAN08,40MG/D.
     Dates: start: 20080119
  7. NEUPOGEN [Suspect]
     Indication: ACUTE LYMPHOCYTIC LEUKAEMIA
     Dosage: ALSO ON 19-19JAN08,40MG/D.
     Dates: start: 20080119

REACTIONS (7)
  - ACCIDENTAL OVERDOSE [None]
  - CONFUSIONAL STATE [None]
  - DIARRHOEA [None]
  - ESCHERICHIA URINARY TRACT INFECTION [None]
  - GENERALISED OEDEMA [None]
  - RESPIRATORY DISORDER [None]
  - THROMBOTIC MICROANGIOPATHY [None]
